FAERS Safety Report 16909656 (Version 1)
Quarter: 2019Q4

REPORT INFORMATION
  Report Type: Report from Study
  Country: US (occurrence: US)
  Receive Date: 20191011
  Receipt Date: 20191011
  Transmission Date: 20200122
  Serious: Yes (Other)
  Sender: FDA-Public Use
  Company Number: US-BAUSCH-BL-2019-057562

PATIENT
  Age: 48 Year
  Sex: Male

DRUGS (1)
  1. SILIQ [Suspect]
     Active Substance: BRODALUMAB
     Indication: PRODUCT USED FOR UNKNOWN INDICATION
     Dosage: SILIQ 210 MG/1.5 ML SOSY (SOLUTION PREFILLED SYRINGE) ?INJECT 210 MG SUBCUTANEOUSLY AT  WEEKS 0,1,2.
     Route: 058

REACTIONS (2)
  - Oral surgery [Unknown]
  - Sinusitis [Not Recovered/Not Resolved]

NARRATIVE: CASE EVENT DATE: 20191004
